FAERS Safety Report 9678353 (Version 1)
Quarter: 2013Q4

REPORT INFORMATION
  Report Type: Spontaneous
  Country: US (occurrence: None)
  Receive Date: 20131106
  Receipt Date: 20131106
  Transmission Date: 20140711
  Serious: Yes (Other)
  Sender: FDA-Public Use
  Company Number: SYM-2013-10018

PATIENT
  Age: 7 Year
  Sex: Female

DRUGS (1)
  1. XENAZINE [Suspect]
     Indication: CHOREA
     Dosage: 12.5 MG, 1 1/2 TABLETS IN THE MORNING, 1 TABLET IN THE AFTERNOON AND EVENING.
     Route: 048
     Dates: start: 20130710

REACTIONS (4)
  - Drug ineffective [None]
  - Screaming [None]
  - Depressed mood [None]
  - Wrong technique in drug usage process [None]
